FAERS Safety Report 9028891 (Version 1)
Quarter: 2013Q1

REPORT INFORMATION
  Report Type: Spontaneous
  Country: US (occurrence: US)
  Receive Date: 20130124
  Receipt Date: 20130124
  Transmission Date: 20140127
  Serious: No
  Sender: FDA-Public Use
  Company Number: US-BAUSCH-2012BL003012

PATIENT
  Age: 52 Year
  Sex: 0

DRUGS (2)
  1. ALAWAY [Suspect]
     Indication: PRODUCT USED FOR UNKNOWN INDICATION
     Route: 047
     Dates: start: 20120430, end: 20120501
  2. METFORMIN [Concomitant]

REACTIONS (1)
  - Eye pain [Recovered/Resolved]
